FAERS Safety Report 8914492 (Version 1)
Quarter: 2012Q4

REPORT INFORMATION
  Report Type: 
  Country: GB (occurrence: GB)
  Receive Date: 20121116
  Receipt Date: 20121116
  Transmission Date: 20130627
  Serious: Yes (Hospitalization)
  Sender: FDA-Public Use
  Company Number: GB-UCBSA-070580

PATIENT
  Age: 10 Year
  Sex: Male

DRUGS (3)
  1. LACOSAMIDE [Suspect]
     Dosage: 7 ML LIQUID
     Dates: start: 201203
  2. OXCARBAZEPINE [Concomitant]
     Dosage: UNKNOWN DOSE
  3. LAMOTRIGINE [Concomitant]
     Dosage: UNKNOWN DOSE

REACTIONS (2)
  - Gastrointestinal haemorrhage [Unknown]
  - Haematemesis [Unknown]
